FAERS Safety Report 4289948-9 (Version None)
Quarter: 2004Q1

REPORT INFORMATION
  Report Type: 
  Country: None (occurrence: None)
  Receive Date: 20040209
  Receipt Date: 20040129
  Transmission Date: 20041129
  Serious: Yes (Hospitalization)
  Sender: FDA-Public Use
  Company Number: PHBS2004JP01531

PATIENT
  Sex: Male

DRUGS (6)
  1. RITALIN [Suspect]
     Dosage: 10 MG/DAY
     Route: 048
     Dates: start: 19950411
  2. RITALIN [Suspect]
     Dosage: 80 MG/DAY
     Route: 048
  3. RITALIN [Suspect]
     Dosage: 300 MG
     Route: 048
     Dates: start: 19981026, end: 19981026
  4. TOFRANIL [Concomitant]
     Route: 048
  5. LEXOTAN [Concomitant]
     Route: 065
  6. DIAZEPAM [Concomitant]
     Route: 065

REACTIONS (3)
  - AGGRESSION [None]
  - DRUG DEPENDENCE [None]
  - PERSECUTORY DELUSION [None]
